FAERS Safety Report 11925072 (Version 1)
Quarter: 2016Q1

REPORT INFORMATION
  Report Type: Spontaneous
  Country: CN (occurrence: CN)
  Receive Date: 20160118
  Receipt Date: 20160118
  Transmission Date: 20160526
  Serious: Yes (Hospitalization)
  Sender: FDA-Public Use
  Company Number: PHHY2016CN003690

PATIENT
  Age: 81 Year
  Sex: Male
  Weight: 89 kg

DRUGS (1)
  1. DIOVAN [Suspect]
     Active Substance: VALSARTAN
     Indication: HYPERTENSION
     Dosage: 80 MG, QD
     Route: 048
     Dates: start: 20150824, end: 20150824

REACTIONS (6)
  - Proteinuria [Recovering/Resolving]
  - Drug eruption [Recovering/Resolving]
  - Renal impairment [Recovering/Resolving]
  - Rash [Recovering/Resolving]
  - Hypertensive nephropathy [Recovering/Resolving]
  - Anaemia [Recovering/Resolving]

NARRATIVE: CASE EVENT DATE: 20150901
